FAERS Safety Report 24388497 (Version 1)
Quarter: 2024Q4

REPORT INFORMATION
  Report Type: Spontaneous
  Country: CA (occurrence: CA)
  Receive Date: 20241002
  Receipt Date: 20241002
  Transmission Date: 20250115
  Serious: Yes (Hospitalization, Other)
  Sender: BRISTOL MYERS SQUIBB
  Company Number: CA-BRISTOL-MYERS SQUIBB COMPANY-2024-154870

PATIENT
  Age: 88 Year
  Sex: Male
  Weight: 69 kg

DRUGS (15)
  1. ELIQUIS [Suspect]
     Active Substance: APIXABAN
     Indication: Atrial fibrillation
     Route: 048
  2. ACETAMINOPHEN [Concomitant]
     Active Substance: ACETAMINOPHEN
  3. ALFUZOSIN [Concomitant]
     Active Substance: ALFUZOSIN
  4. AMLODIPINE [Concomitant]
     Active Substance: AMLODIPINE BESYLATE
  5. ATORVASTATIN [Concomitant]
     Active Substance: ATORVASTATIN
  6. CALCIUM CARBONATE [Concomitant]
     Active Substance: CALCIUM CARBONATE
  7. CANDESARTAN [Concomitant]
     Active Substance: CANDESARTAN
  8. CEFTRIAXONE [Concomitant]
     Active Substance: CEFTRIAXONE
     Route: 030
  9. VITAMINS [Concomitant]
     Active Substance: VITAMINS
  10. CITALOPRAM [Concomitant]
     Active Substance: CITALOPRAM
  11. FERROUS SULFATE [Concomitant]
     Active Substance: FERROUS SULFATE
  12. NITROGLYCERIN [Concomitant]
     Active Substance: NITROGLYCERIN
  13. RANITIDINE [Concomitant]
     Active Substance: RANITIDINE
  14. TRELEGY ELLIPTA [Concomitant]
     Active Substance: FLUTICASONE FUROATE\UMECLIDINIUM BROMIDE\VILANTEROL TRIFENATATE
  15. VITAMIN D NOS [Concomitant]
     Active Substance: CHOLECALCIFEROL\ERGOCALCIFEROL

REACTIONS (3)
  - Duodenal ulcer [Recovered/Resolved]
  - Upper gastrointestinal haemorrhage [Recovered/Resolved]
  - Hospitalisation [Unknown]
